FAERS Safety Report 4842853-9 (Version None)
Quarter: 2005Q4

REPORT INFORMATION
  Report Type: 
  Country: None (occurrence: None)
  Receive Date: 20051129
  Receipt Date: 20051114
  Transmission Date: 20060501
  Serious: Yes (Life-Threatening, Hospitalization, Other)
  Sender: FDA-Public Use
  Company Number: JP-SHR-03-001745

PATIENT
  Age: 52 Year
  Sex: Female
  Weight: 41 kg

DRUGS (2)
  1. BETASERON [Suspect]
     Indication: RELAPSING-REMITTING MULTIPLE SCLEROSIS
     Dosage: 8 MIU, EVERY 2D, SUBCUTANEOUS
     Route: 058
     Dates: start: 20030127, end: 20030127
  2. LOXONIN (LOXOPROFEN SODIUM) TABLET, 60MG [Suspect]
     Indication: HEADACHE
     Dosage: 60 MG, 3X/DAY, ORAL
     Route: 048
     Dates: start: 20030128, end: 20030129

REACTIONS (3)
  - CONTUSION [None]
  - DEPRESSED LEVEL OF CONSCIOUSNESS [None]
  - EXTRADURAL HAEMATOMA [None]
